FAERS Safety Report 5412086-6 (Version None)
Quarter: 2007Q3

REPORT INFORMATION
  Report Type: 
  Country: None (occurrence: None)
  Receive Date: 20070808
  Receipt Date: 20070726
  Transmission Date: 20080115
  Serious: Yes (Hospitalization)
  Sender: FDA-Public Use
  Company Number: 8025754

PATIENT
  Age: 60 Year
  Sex: Female
  Weight: 69 kg

DRUGS (17)
  1. KEPPRA [Suspect]
     Dosage: 500 MG 2/D PO
     Route: 048
     Dates: start: 20070507, end: 20070710
  2. COVERSYL /00790701/ [Suspect]
     Dosage: 4 MG 2/D PO
     Route: 048
     Dates: start: 20070620, end: 20070710
  3. IMOVANE. MFR: NOT SPECIFIED [Suspect]
     Dosage: 7.5 MG 1/D PO
     Route: 048
     Dates: start: 20070612, end: 20070710
  4. PRIMPERAN ELIXIR [Suspect]
     Dosage: PO
     Route: 048
     Dates: start: 20070704, end: 20070710
  5. NUTRIFLEX /00990701/ [Suspect]
     Dates: start: 20070613, end: 20070711
  6. LOVENOX [Concomitant]
  7. OSMOTAN [Concomitant]
  8. ESIDRIX [Concomitant]
  9. TENORMIN [Concomitant]
  10. LANSOYL [Concomitant]
  11. NEXIUM [Concomitant]
  12. POLARAMINE [Concomitant]
  13. DESLORATADINE [Concomitant]
  14. MOTILIUM [Concomitant]
  15. COSOPT [Concomitant]
  16. XALATAN [Concomitant]
  17. SOLU-MEDROL [Concomitant]

REACTIONS (5)
  - DERMATITIS BULLOUS [None]
  - HAEMORRHAGIC STROKE [None]
  - NAUSEA [None]
  - PETECHIAE [None]
  - VOMITING [None]
